FAERS Safety Report 13055492 (Version 2)
Quarter: 2017Q1

REPORT INFORMATION
  Report Type: Report from Study
  Country: US (occurrence: US)
  Receive Date: 20161222
  Receipt Date: 20170113
  Transmission Date: 20170428
  Serious: Yes (Hospitalization, Other)
  Sender: FDA-Public Use
  Company Number: US-GILEAD-2016-0249949

PATIENT
  Age: 51 Year
  Sex: Male

DRUGS (1)
  1. RANOLAZINE [Suspect]
     Active Substance: RANOLAZINE
     Indication: ANGINA PECTORIS
     Dosage: 500 MG, UNK
     Route: 048
     Dates: start: 201607

REACTIONS (10)
  - Myocardial infarction [Unknown]
  - Toe amputation [Unknown]
  - Cardiac operation [Unknown]
  - Head injury [Unknown]
  - Vertigo [Unknown]
  - Fall [Unknown]
  - Chest pain [Unknown]
  - Osteomyelitis [Unknown]
  - Stent placement [Unknown]
  - Catheter placement [Unknown]

NARRATIVE: CASE EVENT DATE: 201608
